FAERS Safety Report 5072633-3 (Version None)
Quarter: 2006Q3

REPORT INFORMATION
  Report Type: 
  Country: None (occurrence: None)
  Receive Date: 20060807
  Receipt Date: 20060420
  Transmission Date: 20061208
  Serious: Yes (Hospitalization)
  Sender: FDA-Public Use
  Company Number: JP-JPN-A200601319

PATIENT
  Age: 65 Year
  Sex: Male
  Weight: 60 kg

DRUGS (9)
  1. ALKERAN [Suspect]
     Indication: MULTIPLE MYELOMA
     Dosage: 10MG PER DAY
     Route: 048
     Dates: start: 20060206, end: 20060210
  2. ALKERAN [Suspect]
     Dosage: 10MG PER DAY
     Route: 048
     Dates: start: 20060313, end: 20060317
  3. PREDONINE [Concomitant]
     Indication: MULTIPLE MYELOMA
     Dosage: 180MG PER DAY
     Route: 048
     Dates: start: 20060206, end: 20060317
  4. BEZATOL SR [Concomitant]
     Dosage: 200MG PER DAY
     Route: 048
  5. ASPIRIN [Concomitant]
     Indication: REHABILITATION THERAPY
     Dosage: 100MG PER DAY
     Route: 048
  6. ACTOS [Concomitant]
     Indication: DIABETES MELLITUS
     Dosage: 30MG PER DAY
     Route: 048
  7. AVISHOT [Concomitant]
     Dosage: 50MG PER DAY
     Route: 048
  8. UBRETID [Concomitant]
     Dosage: 10MG TWICE PER DAY
     Route: 048
  9. OMEPRAL [Concomitant]
     Dosage: 20MG PER DAY
     Route: 065

REACTIONS (1)
  - INTERSTITIAL LUNG DISEASE [None]
